FAERS Safety Report 13738975 (Version 1)
Quarter: 2017Q3

REPORT INFORMATION
  Report Type: Report from Study
  Country: US (occurrence: US)
  Receive Date: 20170710
  Receipt Date: 20170710
  Transmission Date: 20171127
  Serious: Yes (Other)
  Sender: FDA-Public Use
  Company Number: US-SAOL THERAPEUTICS-2017SAO00750

PATIENT
  Age: 35 Year
  Sex: Female

DRUGS (24)
  1. COMPOUNDED BACLOFEN [Suspect]
     Active Substance: BACLOFEN
     Dosage: 60.06 ?G, \DAY
     Route: 037
     Dates: start: 20160620, end: 20160627
  2. COMPOUNDED BACLOFEN [Suspect]
     Active Substance: BACLOFEN
     Dosage: 209.01 ?G, \DAY
     Route: 037
     Dates: start: 20160620, end: 20160627
  3. COMPOUNDED BACLOFEN [Suspect]
     Active Substance: BACLOFEN
     Dosage: 45.05 ?G, \DAY
     Route: 037
     Dates: start: 20160627, end: 20160713
  4. CLONIDINE. [Suspect]
     Active Substance: CLONIDINE
     Dosage: 30.03 ?G, \DAY
     Route: 037
     Dates: start: 20160620
  5. CLONIDINE. [Suspect]
     Active Substance: CLONIDINE
     Dosage: 82.16 ?G, \DAY
     Route: 037
     Dates: start: 20160627
  6. DILAUDID [Suspect]
     Active Substance: HYDROMORPHONE HYDROCHLORIDE
     Dosage: 0.120 MG, \DAY
     Route: 037
     Dates: start: 20160620
  7. DILAUDID [Suspect]
     Active Substance: HYDROMORPHONE HYDROCHLORIDE
     Dosage: 0.090 MG, \DAY
     Route: 037
     Dates: start: 20160627
  8. BUPIVACAINE. [Suspect]
     Active Substance: BUPIVACAINE
     Dosage: 8.360 MG, \DAY
     Dates: start: 20160620, end: 20160627
  9. COMPOUNDED BACLOFEN [Suspect]
     Active Substance: BACLOFEN
     Dosage: 139.97 ?G, \DAY
     Route: 037
     Dates: start: 20160112, end: 20160202
  10. CLONIDINE. [Suspect]
     Active Substance: CLONIDINE
     Dosage: 104.50 ?G, \DAY
     Route: 037
     Dates: start: 20160620, end: 20160627
  11. BUPIVACAINE. [Suspect]
     Active Substance: BUPIVACAINE
     Dosage: 1.802 MG, \DAY
     Route: 037
     Dates: start: 20160627
  12. CLONIDINE. [Suspect]
     Active Substance: CLONIDINE
     Dosage: 34.993 ?G, \DAY
     Route: 037
     Dates: start: 20160112
  13. DILAUDID [Suspect]
     Active Substance: HYDROMORPHONE HYDROCHLORIDE
     Dosage: 349.93 ?G, \DAY
     Route: 037
     Dates: start: 20160112
  14. BUPIVACAINE. [Suspect]
     Active Substance: BUPIVACAINE
     Dosage: 7.418 MG, \DAY
     Route: 037
     Dates: start: 20160112
  15. DILAUDID [Suspect]
     Active Substance: HYDROMORPHONE HYDROCHLORIDE
     Dosage: 0.328 MG, \DAY
     Route: 037
     Dates: start: 20160627
  16. BUPIVACAINE. [Suspect]
     Active Substance: BUPIVACAINE
     Dosage: 5.0 MG, \DAY
     Route: 037
     Dates: start: 20160202, end: 20160620
  17. DILAUDID [Suspect]
     Active Substance: HYDROMORPHONE HYDROCHLORIDE
     Dosage: 0.418 MG, \DAY
     Route: 037
     Dates: start: 20160620, end: 20160627
  18. BUPIVACAINE. [Suspect]
     Active Substance: BUPIVACAINE
     Dosage: 6.573 MG, \DAY
     Route: 037
     Dates: start: 20160627
  19. COMPOUNDED BACLOFEN [Suspect]
     Active Substance: BACLOFEN
     Dosage: 164.33 ?G, \DAY
     Route: 037
     Dates: start: 20160627, end: 20160713
  20. CLONIDINE. [Suspect]
     Active Substance: CLONIDINE
     Dosage: 62.5 ?G, \DAY
     Route: 037
     Dates: start: 20160202, end: 20160620
  21. CLONIDINE. [Suspect]
     Active Substance: CLONIDINE
     Dosage: 22.52 ?G, \DAY
     Route: 037
     Dates: start: 20160627
  22. DILAUDID [Suspect]
     Active Substance: HYDROMORPHONE HYDROCHLORIDE
     Dosage: 0.25 MG, \DAY
     Route: 037
     Dates: start: 20160202, end: 20160620
  23. BUPIVACAINE. [Suspect]
     Active Substance: BUPIVACAINE
     Dosage: 2.403 MG, \DAY
     Route: 037
     Dates: start: 20160620
  24. COMPOUNDED BACLOFEN [Suspect]
     Active Substance: BACLOFEN
     Dosage: 124.99 ?G, \DAY
     Route: 037
     Dates: start: 20160202, end: 20160620

REACTIONS (8)
  - Hallucination [Not Recovered/Not Resolved]
  - Pain [Not Recovered/Not Resolved]
  - Implant site pain [Not Recovered/Not Resolved]
  - Headache [Not Recovered/Not Resolved]
  - Personality change [Not Recovered/Not Resolved]
  - Mental status changes [Not Recovered/Not Resolved]
  - Hypoaesthesia [Not Recovered/Not Resolved]
  - Nausea [Not Recovered/Not Resolved]

NARRATIVE: CASE EVENT DATE: 2016
